FAERS Safety Report 5139463-5 (Version None)
Quarter: 2006Q4

REPORT INFORMATION
  Report Type: 
  Country: None (occurrence: None)
  Receive Date: 20061024
  Receipt Date: 20061013
  Transmission Date: 20070319
  Serious: Yes (Other)
  Sender: FDA-Public Use
  Company Number: 2006090307

PATIENT
  Sex: Female

DRUGS (9)
  1. LIPITOR [Suspect]
     Indication: BLOOD CHOLESTEROL INCREASED
     Dosage: 80 MG (80 MG, 1 IN 1 D)
     Dates: start: 20060101
  2. COZAAR [Concomitant]
  3. COREG [Concomitant]
  4. ACTOS [Concomitant]
  5. AMARYL [Concomitant]
  6. GLYSET (MIGLITOL) [Concomitant]
  7. SEREVENT [Concomitant]
  8. ASPIRIN [Concomitant]
  9. PULMICORT [Concomitant]

REACTIONS (5)
  - DENTAL OPERATION [None]
  - DYSPHAGIA [None]
  - EYE HAEMORRHAGE [None]
  - INJURY [None]
  - STOMATITIS [None]
